FAERS Safety Report 8017240-5 (Version None)
Quarter: 2012Q1

REPORT INFORMATION
  Report Type: 
  Country: None (occurrence: None)
  Receive Date: 20120102
  Receipt Date: 20111226
  Transmission Date: 20120608
  Serious: Yes (Other)
  Sender: FDA-Public Use
  Company Number: PHHY2011JP108110

PATIENT
  Age: 64 Year
  Sex: Male

DRUGS (2)
  1. YODEL-S [Concomitant]
     Route: 048
  2. TEGRETOL [Suspect]
     Dosage: 200 MG, QHS
     Route: 048

REACTIONS (1)
  - ANURIA [None]
